FAERS Safety Report 19780413 (Version 2)
Quarter: 2021Q3

REPORT INFORMATION
  Report Type: Report from Study
  Country: FR (occurrence: FR)
  Receive Date: 20210902
  Receipt Date: 20210907
  Transmission Date: 20211014
  Serious: Yes (Death)
  Sender: FDA-Public Use
  Company Number: FR-MYLANLABS-2021M1058377

PATIENT
  Age: 82 Year
  Sex: Female

DRUGS (3)
  1. CAPECITABINE. [Suspect]
     Active Substance: CAPECITABINE
     Indication: HER2 POSITIVE BREAST CANCER
     Dosage: 2000 MILLIGRAM/SQ. METER, QD (1000 MG/M2, BID)
     Route: 048
  2. TUCATINIB [Suspect]
     Active Substance: TUCATINIB
     Indication: HER2 POSITIVE BREAST CANCER
     Dosage: 600 MILLIGRAM, QD (300 MG, BID)
     Route: 048
     Dates: start: 20210315, end: 20210317
  3. TRASTUZUMAB. [Suspect]
     Active Substance: TRASTUZUMAB
     Indication: HER2 POSITIVE BREAST CANCER
     Dosage: 600 MILLIGRAM, Q3W
     Route: 058

REACTIONS (3)
  - Death [Fatal]
  - Diarrhoea [Fatal]
  - Asthenia [Fatal]

NARRATIVE: CASE EVENT DATE: 20210316
